FAERS Safety Report 5043240-3 (Version None)
Quarter: 2006Q2

REPORT INFORMATION
  Report Type: 
  Country: None (occurrence: None)
  Receive Date: 20060627
  Receipt Date: 20060619
  Transmission Date: 20061013
  Serious: Yes (Death, Life-Threatening, Hospitalization)
  Sender: FDA-Public Use
  Company Number: KADN20060017

PATIENT
  Age: 2 Year
  Sex: Male

DRUGS (1)
  1. KAPANOL     GSK [Suspect]
     Dosage: 20 MG PO
     Route: 048
     Dates: start: 20000605, end: 20000605

REACTIONS (5)
  - ACCIDENTAL DRUG INTAKE BY CHILD [None]
  - DRUG TOXICITY [None]
  - MIOSIS [None]
  - OVERDOSE [None]
  - RESPIRATORY ARREST [None]
